FAERS Safety Report 7369084-5 (Version None)
Quarter: 2011Q1

REPORT INFORMATION
  Report Type: 
  Country: None (occurrence: None)
  Receive Date: 20110309
  Receipt Date: 20110225
  Transmission Date: 20110831
  Serious: Yes (Other)
  Sender: FDA-Public Use
  Company Number: 2011SP009120

PATIENT
  Age: 43 Year
  Sex: Male

DRUGS (4)
  1. SAPHRIS [Suspect]
     Indication: BIPOLAR I DISORDER
     Dosage: SL
     Route: 060
  2. SAPHRIS [Suspect]
     Indication: PSYCHOTIC DISORDER
     Dosage: SL
     Route: 060
  3. ANAFRANIL [Concomitant]
  4. LAMICTAL [Concomitant]

REACTIONS (4)
  - ANXIETY [None]
  - HALLUCINATION [None]
  - PSYCHOTIC DISORDER [None]
  - FEELING ABNORMAL [None]
